FAERS Safety Report 6178968-5 (Version None)
Quarter: 2009Q2

REPORT INFORMATION
  Report Type: 
  Country: None (occurrence: None)
  Receive Date: 20090505
  Receipt Date: 20090429
  Transmission Date: 20091009
  Serious: Yes (Hospitalization)
  Sender: FDA-Public Use
  Company Number: JP-JNJFOC-20090500235

PATIENT
  Age: 62 Year
  Sex: Female

DRUGS (6)
  1. CRAVIT [Suspect]
     Indication: DIARRHOEA
     Route: 048
  2. CRAVIT [Suspect]
     Indication: NASOPHARYNGITIS
     Route: 048
  3. AZITHROMYCIN [Suspect]
     Indication: DRUG USE FOR UNKNOWN INDICATION
     Route: 065
  4. VALSARTAN [Concomitant]
     Route: 065
  5. MECOBALAMIN [Concomitant]
     Route: 065
  6. ROSUVASTATIN CALCIUM [Concomitant]
     Route: 065

REACTIONS (1)
  - INTERSTITIAL LUNG DISEASE [None]
